FAERS Safety Report 4739469-1 (Version None)
Quarter: 2005Q3

REPORT INFORMATION
  Report Type: 
  Country: None (occurrence: None)
  Receive Date: 20050810
  Receipt Date: 20050325
  Transmission Date: 20060218
  Serious: No
  Sender: FDA-Public Use
  Company Number: US-GLAXOSMITHKLINE-A0551294A

PATIENT
  Age: 81 Year
  Sex: Female

DRUGS (7)
  1. PAXIL [Suspect]
     Indication: ANXIETY
     Dosage: 10MG PER DAY
     Route: 048
  2. NEURONTIN [Concomitant]
  3. SYNTHROID [Concomitant]
  4. PREMARIN [Concomitant]
  5. HYDROCHLOROTHIAZIDE [Concomitant]
  6. ADVICOR [Concomitant]
  7. VITAMIN [Concomitant]

REACTIONS (3)
  - ASTHENIA [None]
  - INFLUENZA [None]
  - MUSCLE SPASMS [None]
